FAERS Safety Report 12481918 (Version 1)
Quarter: 2016Q2

REPORT INFORMATION
  Report Type: Spontaneous
  Country: US (occurrence: US)
  Receive Date: 20160620
  Receipt Date: 20160620
  Transmission Date: 20160815
  Serious: No
  Sender: FDA-Public Use
  Company Number: US-ELI_LILLY_AND_COMPANY-US201606004914

PATIENT
  Sex: Female

DRUGS (9)
  1. HCTZ [Concomitant]
     Active Substance: HYDROCHLOROTHIAZIDE
  2. LISINOPRIL. [Concomitant]
     Active Substance: LISINOPRIL
  3. SOLODYN [Concomitant]
     Active Substance: MINOCYCLINE HYDROCHLORIDE
  4. HUMULIN 70/30 [Suspect]
     Active Substance: INSULIN HUMAN
     Indication: TYPE 2 DIABETES MELLITUS
     Dosage: 34 U, EACH MORNING
     Route: 065
     Dates: start: 20151112
  5. GABAPENTIN. [Concomitant]
     Active Substance: GABAPENTIN
  6. HUMULIN 70/30 [Suspect]
     Active Substance: INSULIN HUMAN
     Dosage: 30 U, EACH EVENING
     Route: 065
  7. PRAVASTATIN [Concomitant]
     Active Substance: PRAVASTATIN\PRAVASTATIN SODIUM
  8. HUMULIN 70/30 [Suspect]
     Active Substance: INSULIN HUMAN
     Dosage: 34 U, EACH MORNING
     Route: 065
  9. HUMULIN 70/30 [Suspect]
     Active Substance: INSULIN HUMAN
     Dosage: 30 U, EACH EVENING
     Route: 065
     Dates: start: 20151112

REACTIONS (1)
  - Blood glucose increased [Unknown]

NARRATIVE: CASE EVENT DATE: 20160505
